FAERS Safety Report 10473999 (Version 2)
Quarter: 2014Q4

REPORT INFORMATION
  Report Type: Spontaneous
  Country: US (occurrence: US)
  Receive Date: 20140924
  Receipt Date: 20141117
  Transmission Date: 20150528
  Serious: Yes (Hospitalization, Other)
  Sender: FDA-Public Use
  Company Number: US-GLAXOSMITHKLINE-A1089644A

PATIENT
  Age: 86 Year
  Sex: Female

DRUGS (3)
  1. ADVAIR DISKUS [Suspect]
     Active Substance: FLUTICASONE PROPIONATE\SALMETEROL XINAFOATE
     Indication: PRODUCT USED FOR UNKNOWN INDICATION
     Dosage: 100/50MCG, 1 PUFF(S), BID
     Route: 055
     Dates: start: 2012
  2. BLOOD PRESSURE MEDICATION [Concomitant]
     Active Substance: UNSPECIFIED INGREDIENT
  3. UNKNOWN MEDICATION [Concomitant]
     Active Substance: UNSPECIFIED INGREDIENT
     Indication: PRODUCT USED FOR UNKNOWN INDICATION

REACTIONS (12)
  - Dizziness [Not Recovered/Not Resolved]
  - Fall [Unknown]
  - Cardiac pacemaker insertion [Unknown]
  - Drug dose omission [Unknown]
  - Ill-defined disorder [Unknown]
  - Presyncope [Not Recovered/Not Resolved]
  - Chest discomfort [Unknown]
  - Diplegia [Unknown]
  - Stent placement [Unknown]
  - Dyspnoea [Not Recovered/Not Resolved]
  - Gait disturbance [Unknown]
  - Product quality issue [Unknown]

NARRATIVE: CASE EVENT DATE: 20140916
